FAERS Safety Report 8163150-2 (Version None)
Quarter: 2012Q1

REPORT INFORMATION
  Report Type: 
  Country: None (occurrence: None)
  Receive Date: 20120224
  Receipt Date: 20110726
  Transmission Date: 20120608
  Serious: No
  Sender: FDA-Public Use
  Company Number: US-PFIZER INC-K201100896

PATIENT
  Age: 86 Year
  Sex: Female

DRUGS (2)
  1. FLECTOR [Suspect]
     Dosage: UNK PATCH, UNK
     Route: 061
  2. OXYCODONE HCL [Suspect]
     Dosage: UNK

REACTIONS (4)
  - COGNITIVE DISORDER [None]
  - ACTIVITIES OF DAILY LIVING IMPAIRED [None]
  - LEARNING DISABILITY [None]
  - DRUG EFFECT DECREASED [None]
